FAERS Safety Report 9292869 (Version 1)
Quarter: 2013Q2

REPORT INFORMATION
  Report Type: Spontaneous
  Country: US (occurrence: US)
  Receive Date: 20130516
  Receipt Date: 20130516
  Transmission Date: 20140414
  Serious: Yes (Other)
  Sender: FDA-Public Use
  Company Number: US-JNJFOC-20130503164

PATIENT
  Sex: Male
  Weight: 56.38 kg

DRUGS (9)
  1. STELARA [Suspect]
     Indication: PSORIASIS
     Route: 058
     Dates: start: 201206
  2. DERMA-SMOOTHE [Concomitant]
     Route: 065
  3. CLOBETASOL [Concomitant]
     Route: 065
  4. LASIX [Concomitant]
     Route: 065
  5. LOTREL [Concomitant]
     Route: 065
  6. POTASSIUM [Concomitant]
     Route: 065
  7. VITAMIN [Concomitant]
     Route: 065
  8. COMBIVENT [Concomitant]
     Route: 065
  9. FLONASE [Concomitant]
     Route: 065

REACTIONS (2)
  - Blood disorder [Unknown]
  - Erythema [Unknown]
